FAERS Safety Report 5927990-X (Version None)
Quarter: 2008Q4

REPORT INFORMATION
  Report Type: 
  Country: None (occurrence: None)
  Receive Date: 20081023
  Receipt Date: 20081015
  Transmission Date: 20090506
  Serious: Yes (Other)
  Sender: FDA-Public Use
  Company Number: US-JNJFOC-20081004101

PATIENT
  Age: 79 Year
  Sex: Female
  Weight: 88.45 kg

DRUGS (9)
  1. TYLENOL (CAPLET) [Suspect]
     Route: 048
  2. TYLENOL (CAPLET) [Suspect]
     Indication: BACK PAIN
     Route: 048
  3. DIOVAN [Concomitant]
     Indication: HYPERTENSION
  4. CARDIZEM [Concomitant]
     Indication: HYPERTENSION
  5. GLIPIZIDE [Concomitant]
     Indication: DIABETES MELLITUS
  6. FUROSEMIDE [Concomitant]
     Indication: DIURETIC THERAPY
  7. LIPITOR [Concomitant]
     Indication: BLOOD CHOLESTEROL
  8. WARFARIN SODIUM [Concomitant]
     Indication: ANTICOAGULANT THERAPY
  9. CLONIDINE [Concomitant]
     Indication: HYPERTENSION

REACTIONS (2)
  - BLOOD PRESSURE INCREASED [None]
  - HEART RATE INCREASED [None]
